FAERS Safety Report 10835693 (Version 1)
Quarter: 2015Q1

REPORT INFORMATION
  Report Type: Spontaneous
  Country: US (occurrence: None)
  Receive Date: 20150218
  Receipt Date: 20150218
  Transmission Date: 20150721
  Serious: Yes (Hospitalization, Other)
  Sender: FDA-Public Use
  Company Number: US-ZYDUS-006524

PATIENT
  Age: 34 Year
  Sex: Male

DRUGS (4)
  1. AMLODIPINE [Suspect]
     Active Substance: AMLODIPINE BESYLATE
     Route: 048
     Dates: start: 20140310, end: 20140322
  2. ONDANSETRON. [Concomitant]
     Active Substance: ONDANSETRON
  3. STEROID (STEROID) [Concomitant]
  4. METHYLPREDNISOLONE (METHYLPREDNISOLONE) [Concomitant]
     Active Substance: METHYLPREDNISOLONE

REACTIONS (2)
  - Hepatotoxicity [None]
  - Drug-induced liver injury [None]
